FAERS Safety Report 5977012-X (Version None)
Quarter: 2008Q4

REPORT INFORMATION
  Report Type: 
  Country: None (occurrence: None)
  Receive Date: 20081126
  Receipt Date: 20081114
  Transmission Date: 20090506
  Serious: Yes (Hospitalization)
  Sender: FDA-Public Use
  Company Number: US025029

PATIENT
  Age: 34 Year
  Sex: Male
  Weight: 79.3795 kg

DRUGS (8)
  1. ARMODAFINIL [Suspect]
     Indication: SCHIZOPHRENIA
     Dosage: 150 MG QD ORAL
     Route: 048
     Dates: start: 20081030, end: 20081108
  2. TRIAMCINOLONE [Suspect]
     Dosage: BID
  3. BUDESONIDE WITH FORMOTEROL [Concomitant]
  4. ALBUTEROL [Concomitant]
  5. SIMVACOR [Concomitant]
  6. COGENTIN [Concomitant]
  7. PALIPERIDONE [Concomitant]
  8. VARENICLINE [Concomitant]

REACTIONS (7)
  - CONDITION AGGRAVATED [None]
  - DERMATITIS ALLERGIC [None]
  - ECZEMA [None]
  - EXCORIATION [None]
  - HYPERSENSITIVITY [None]
  - RASH PAPULAR [None]
  - SCHIZOPHRENIA [None]
